FAERS Safety Report 6025557-9 (Version None)
Quarter: 2008Q4

REPORT INFORMATION
  Report Type: 
  Country: None (occurrence: None)
  Receive Date: 20081231
  Receipt Date: 20081219
  Transmission Date: 20090506
  Serious: Yes (Hospitalization)
  Sender: FDA-Public Use
  Company Number: GB-GENENTECH-274624

PATIENT
  Sex: Female

DRUGS (11)
  1. RITUXIMAB [Suspect]
     Indication: RHEUMATOID ARTHRITIS
     Dosage: 1000 MG, UNK
     Dates: start: 20071029
  2. PREDNISOLONE [Concomitant]
     Indication: DRUG USE FOR UNKNOWN INDICATION
  3. AMILORIDE HYDROCHLORIDE [Concomitant]
     Indication: DRUG USE FOR UNKNOWN INDICATION
  4. AMITRIPTYLINE HCL [Concomitant]
     Indication: DRUG USE FOR UNKNOWN INDICATION
  5. BUMETANIDE [Concomitant]
     Indication: DRUG USE FOR UNKNOWN INDICATION
  6. CALCICHEW [Concomitant]
     Indication: DRUG USE FOR UNKNOWN INDICATION
  7. DIHYDROCODEINE BITARTRATE INJ [Concomitant]
     Indication: DRUG USE FOR UNKNOWN INDICATION
  8. PARACETAMOL [Concomitant]
     Indication: DRUG USE FOR UNKNOWN INDICATION
  9. RISEDRONATE SODIUM [Concomitant]
     Indication: DRUG USE FOR UNKNOWN INDICATION
  10. SPIRONOLACTONE [Concomitant]
     Indication: DRUG USE FOR UNKNOWN INDICATION
  11. TRAMADOL [Concomitant]
     Indication: DRUG USE FOR UNKNOWN INDICATION

REACTIONS (2)
  - CONDITION AGGRAVATED [None]
  - RHEUMATOID ARTHRITIS [None]
